FAERS Safety Report 10936273 (Version 1)
Quarter: 2015Q1

REPORT INFORMATION
  Report Type: Spontaneous
  Country: GB (occurrence: None)
  Receive Date: 20150320
  Receipt Date: 20150320
  Transmission Date: 20150721
  Serious: No
  Sender: FDA-Public Use
  Company Number: None

PATIENT
  Age: 23 Year
  Sex: Male
  Weight: 63.5 kg

DRUGS (1)
  1. OXYBUTYNIN OXYBUTYNIN HYDROCHLORIDE [Suspect]
     Active Substance: OXYBUTYNIN\OXYBUTYNIN CHLORIDE
     Indication: HYPERHIDROSIS
     Dosage: YES
     Route: 048
     Dates: start: 20120313, end: 20150319

REACTIONS (6)
  - Abdominal pain upper [None]
  - Peripheral coldness [None]
  - Eye pain [None]
  - Disturbance in attention [None]
  - Chapped lips [None]
  - Lip pain [None]

NARRATIVE: CASE EVENT DATE: 20150319
